FAERS Safety Report 20106801 (Version 1)
Quarter: 2021Q4

REPORT INFORMATION
  Report Type: Spontaneous
  Country: DE (occurrence: DE)
  Receive Date: 20211124
  Receipt Date: 20211124
  Transmission Date: 20220303
  Serious: Yes (Hospitalization, Other)
  Sender: FDA-Public Use
  Company Number: DE-ABBVIE-21K-062-4171648-00

PATIENT
  Age: 1 Day
  Sex: Female
  Weight: 2.4 kg

DRUGS (6)
  1. VALPROATE SODIUM [Suspect]
     Active Substance: VALPROATE SODIUM
     Indication: Maternal exposure timing unspecified
     Route: 064
  2. PHENYTOIN [Suspect]
     Active Substance: PHENYTOIN
     Indication: Maternal exposure timing unspecified
     Route: 064
  3. LEVETIRACETAM [Suspect]
     Active Substance: LEVETIRACETAM
     Indication: Maternal exposure timing unspecified
     Route: 064
  4. CLONAZEPAM [Suspect]
     Active Substance: CLONAZEPAM
     Indication: Maternal exposure timing unspecified
     Route: 064
  5. CLOBAZAM [Suspect]
     Active Substance: CLOBAZAM
     Indication: Maternal exposure timing unspecified
     Route: 064
  6. BETAMETHASONE [Concomitant]
     Active Substance: BETAMETHASONE
     Indication: Maternal exposure timing unspecified
     Route: 064

REACTIONS (7)
  - Respiratory disorder neonatal [Recovered/Resolved]
  - Premature baby [Unknown]
  - Selective eating disorder [Recovered/Resolved]
  - Bradycardia neonatal [Recovered/Resolved]
  - Weight gain poor [Unknown]
  - Low birth weight baby [Unknown]
  - Foetal exposure during pregnancy [Unknown]

NARRATIVE: CASE EVENT DATE: 20140402
